FAERS Safety Report 14407160 (Version 2)
Quarter: 2018Q1

REPORT INFORMATION
  Report Type: Not Available
  Country: US (occurrence: US)
  Receive Date: 20180118
  Receipt Date: 20180323
  Transmission Date: 20180509
  Serious: No
  Sender: FDA-Public Use
  Company Number: US-NEUROCRINE BIOSCIENCES INC.-2017NBI02013

PATIENT
  Age: 59 Year
  Sex: Male

DRUGS (3)
  1. INGREZZA [Suspect]
     Active Substance: VALBENAZINE
     Route: 048
  2. INGREZZA [Suspect]
     Active Substance: VALBENAZINE
     Indication: PRODUCT USED FOR UNKNOWN INDICATION
     Route: 048
     Dates: start: 20171025, end: 20171101
  3. INGREZZA [Suspect]
     Active Substance: VALBENAZINE
     Route: 048
     Dates: start: 20171102

REACTIONS (9)
  - Abnormal behaviour [Unknown]
  - Lethargy [Unknown]
  - Depressed mood [Unknown]
  - Coordination abnormal [Unknown]
  - Asthenia [Unknown]
  - Staring [Unknown]
  - Fatigue [Unknown]
  - Bradykinesia [Unknown]
  - Speech disorder [Unknown]

NARRATIVE: CASE EVENT DATE: 20171025
